FAERS Safety Report 16006182 (Version 1)
Quarter: 2019Q1

REPORT INFORMATION
  Report Type: Spontaneous
  Country: GR (occurrence: GR)
  Receive Date: 20190226
  Receipt Date: 20190226
  Transmission Date: 20190418
  Serious: Yes (Other)
  Sender: FDA-Public Use
  Company Number: GR-PRAGMA PHARMACEUTICALS, LLC-2019PRG00153

PATIENT
  Age: 22 Year
  Sex: Male

DRUGS (1)
  1. AMOXICILLIN. [Suspect]
     Active Substance: AMOXICILLIN
     Indication: TONSILLITIS
     Dosage: UNK UNK, ONCE
     Route: 065

REACTIONS (2)
  - Kounis syndrome [Unknown]
  - Acute myocardial infarction [Unknown]
